FAERS Safety Report 18151451 (Version 1)
Quarter: 2020Q3

REPORT INFORMATION
  Report Type: Report from Study
  Country: None (occurrence: US)
  Receive Date: 20200814
  Receipt Date: 20200814
  Transmission Date: 20201103
  Serious: No
  Sender: FDA-Public Use
  Company Number: US-BIOVITRUM-2020US2223

PATIENT
  Age: 80 Year
  Sex: Male

DRUGS (2)
  1. KINERET [Suspect]
     Active Substance: ANAKINRA
     Indication: IMMUNE SYSTEM DISORDER
     Route: 058
     Dates: start: 20200211
  2. KINERET [Suspect]
     Active Substance: ANAKINRA
     Indication: PLASMA CELL MYELOMA
     Route: 058
     Dates: start: 20190409

REACTIONS (2)
  - Blood count abnormal [Unknown]
  - Off label use [Unknown]

NARRATIVE: CASE EVENT DATE: 20200211
